FAERS Safety Report 4758106-3 (Version None)
Quarter: 2005Q3

REPORT INFORMATION
  Report Type: 
  Country: None (occurrence: None)
  Receive Date: 20050831
  Receipt Date: 20050810
  Transmission Date: 20060218
  Serious: Yes (Hospitalization, Other)
  Sender: FDA-Public Use
  Company Number: US-AMGEN-US146147

PATIENT
  Sex: Female

DRUGS (3)
  1. ARANESP [Suspect]
     Indication: RENAL FAILURE CHRONIC
     Route: 058
     Dates: start: 20030521
  2. AZATHIOPRINE [Concomitant]
     Dates: start: 19940101
  3. BLOOD CELLS, PACKED HUMAN [Concomitant]
     Route: 042
     Dates: start: 20050608, end: 20050827

REACTIONS (4)
  - APLASIA PURE RED CELL [None]
  - BONE MARROW DEPRESSION [None]
  - PARVOVIRUS B19 SEROLOGY POSITIVE [None]
  - THERAPEUTIC RESPONSE DECREASED [None]
